FAERS Safety Report 10558807 (Version 4)
Quarter: 2015Q1

REPORT INFORMATION
  Report Type: Report from Study
  Country: US (occurrence: US)
  Receive Date: 20141031
  Receipt Date: 20150304
  Transmission Date: 20150720
  Serious: Yes (Hospitalization, Congenital Anomaly, Other)
  Sender: FDA-Public Use
  Company Number: US-GLENMARK GENERICS INC.-2014GMK011488

PATIENT
  Age: 0 Year
  Sex: Male
  Weight: 3.13 kg

DRUGS (11)
  1. MULTIVITAMINS [Concomitant]
     Active Substance: VITAMINS
     Dosage: 1 DF, QD
     Dates: start: 2006
  2. ADAPALENE AND BENZOYL PEROXIDE [Suspect]
     Active Substance: ADAPALENE\BENZOYL PEROXIDE
     Dosage: 1 APPLICATION, QD
     Dates: start: 20140418
  3. TYLENOL EXTRA STRENGTH [Concomitant]
     Active Substance: ACETAMINOPHEN
     Dosage: 1000 MG, PRN
     Dates: start: 2004
  4. VITAFOL                            /07481201/ [Concomitant]
     Dosage: UNK
  5. ADAPALENE AND BENZOYL PEROXIDE [Suspect]
     Active Substance: ADAPALENE\BENZOYL PEROXIDE
     Dosage: 1 APPLICATION, QD
     Dates: start: 20140419
  6. PHENERGAN [Concomitant]
     Active Substance: PROMETHAZINE HYDROCHLORIDE
     Dosage: UNK
  7. ADAPALENE AND BENZOYL PEROXIDE [Suspect]
     Active Substance: ADAPALENE\BENZOYL PEROXIDE
     Dosage: 1 APPLICATION, QD
     Dates: start: 20140417
  8. ADAPALENE AND BENZOYL PEROXIDE [Suspect]
     Active Substance: ADAPALENE\BENZOYL PEROXIDE
     Dosage: 1 APPLICATION, QD
     Dates: start: 20140421
  9. PRENATAL VITAMINS                  /07499601/ [Concomitant]
     Dosage: 1 DF, QD
     Dates: start: 20140502
  10. ADAPALENE AND BENZOYL PEROXIDE [Suspect]
     Active Substance: ADAPALENE\BENZOYL PEROXIDE
     Dosage: 1 APPLICATION, QD
     Dates: end: 20140422
  11. DICLEGIS [Concomitant]
     Active Substance: DOXYLAMINE SUCCINATE\PYRIDOXINE HYDROCHLORIDE
     Dosage: UNK

REACTIONS (5)
  - Heart disease congenital [Not Recovered/Not Resolved]
  - Coarctation of the aorta [Unknown]
  - Bicuspid aortic valve [Not Recovered/Not Resolved]
  - Congenital heart valve disorder [Unknown]
  - Foetal exposure during pregnancy [Unknown]

NARRATIVE: CASE EVENT DATE: 20140812
